FAERS Safety Report 18358490 (Version 1)
Quarter: 2020Q4

REPORT INFORMATION
  Report Type: Other
  Country: JP (occurrence: JP)
  Receive Date: 20201008
  Receipt Date: 20201008
  Transmission Date: 20210114
  Serious: Yes (Other)
  Sender: FDA-Public Use
  Company Number: JP-ROCHE-2690445

PATIENT
  Age: 81 Year
  Sex: Female
  Weight: 41.5 kg

DRUGS (1)
  1. ALTEPLASE. [Suspect]
     Active Substance: ALTEPLASE
     Indication: ISCHAEMIC STROKE
     Dosage: 0.6 MG/KG FREQUENCY: 1, FREQUENCY UNIT: 809
     Route: 042

REACTIONS (3)
  - Cerebral artery stenosis [Recovered/Resolved]
  - Cerebral haemorrhage [Unknown]
  - Thrombotic cerebral infarction [Unknown]
